FAERS Safety Report 20868331 (Version 4)
Quarter: 2022Q3

REPORT INFORMATION
  Report Type: Spontaneous
  Country: US (occurrence: US)
  Receive Date: 20220524
  Receipt Date: 20220801
  Transmission Date: 20221027
  Serious: Yes (Hospitalization, Other)
  Sender: FDA-Public Use
  Company Number: US-PFIZER INC-202200631267

PATIENT
  Age: 38 Year
  Sex: Female
  Weight: 60 kg

DRUGS (3)
  1. EXEMESTANE [Suspect]
     Active Substance: EXEMESTANE
     Indication: Breast cancer stage II
     Dosage: UNK
     Dates: start: 2021
  2. ANASTROZOLE [Suspect]
     Active Substance: ANASTROZOLE
     Dosage: UNK
     Dates: start: 20211223
  3. ZOLADEX [Suspect]
     Active Substance: GOSERELIN ACETATE
     Dosage: UNK
     Dates: start: 20211223

REACTIONS (17)
  - Second primary malignancy [Not Recovered/Not Resolved]
  - Malignant neoplasm of eye [Not Recovered/Not Resolved]
  - Lymphoma [Not Recovered/Not Resolved]
  - Infection [Not Recovered/Not Resolved]
  - Paralysis [Unknown]
  - Neoplasm progression [Not Recovered/Not Resolved]
  - Visual impairment [Not Recovered/Not Resolved]
  - Myalgia [Unknown]
  - Pain [Unknown]
  - Feeling abnormal [Unknown]
  - Loss of personal independence in daily activities [Unknown]
  - Pain in extremity [Unknown]
  - Spinal pain [Unknown]
  - Back pain [Unknown]
  - Bone pain [Unknown]
  - Arthralgia [Unknown]
  - Gait inability [Unknown]

NARRATIVE: CASE EVENT DATE: 20210901
